FAERS Safety Report 8776210 (Version 1)
Quarter: 2012Q4

REPORT INFORMATION
  Report Type: 
  Country: SE (occurrence: SE)
  Receive Date: 20120910
  Receipt Date: 20120910
  Transmission Date: 20130627
  Serious: Yes (Hospitalization)
  Sender: FDA-Public Use
  Company Number: SE-PFIZER INC-2012217157

PATIENT
  Age: 77 Year
  Sex: Male
  Weight: 93 kg

DRUGS (17)
  1. GENOTROPIN [Suspect]
     Indication: GROWTH HORMONE DEFICIENCY
     Dosage: 0.2 mg/day, 7 injections/week
     Route: 058
     Dates: start: 20010201
  2. LEVAXIN [Concomitant]
     Indication: BLOOD THYROID STIMULATING HORMONE DECREASED
     Dosage: UNK
     Dates: start: 19900301
  3. LEVAXIN [Concomitant]
     Indication: PRIMARY HYPOTHYROIDISM
  4. LUNELAX [Concomitant]
     Indication: OBESITY
     Dosage: UNK
     Dates: start: 19960330
  5. ATMOS [Concomitant]
     Indication: BLOOD LUTEINISING HORMONE DECREASED
     Dosage: UNK
     Dates: start: 19960902
  6. ATMOS [Concomitant]
     Indication: BLOOD FOLLICLE STIMULATING HORMONE DECREASED
  7. ATMOS [Concomitant]
     Indication: HYPOGONADISM MALE
  8. PROSCAR [Concomitant]
     Indication: PROSTATIC DISORDER
     Dosage: UNK
     Dates: start: 19991011
  9. XATRAL [Concomitant]
     Indication: PROSTATIC DISORDER
     Dosage: UNK
     Dates: start: 19981015
  10. CORTISONE ACETATE [Concomitant]
     Indication: BLOOD CORTICOTROPHIN DECREASED
     Dosage: UNK
     Dates: start: 19990301
  11. TROMBYL [Concomitant]
     Indication: PROPHYLAXIS
     Dosage: UNK
     Dates: start: 20020506
  12. MINIFOM [Concomitant]
     Indication: FLATULENCE
     Dosage: UNK
     Dates: start: 20040623
  13. GLUCOSAMIN [Concomitant]
     Indication: INFLAMMATION
     Dosage: UNK
     Dates: start: 20080201
  14. HYDROCORTONE [Concomitant]
     Indication: BLOOD CORTICOTROPHIN DECREASED
     Dosage: UNK
     Dates: start: 20051206
  15. NEBIDO [Concomitant]
     Indication: BLOOD LUTEINISING HORMONE DECREASED
     Dosage: UNK
     Dates: start: 20051206
  16. NEBIDO [Concomitant]
     Indication: BLOOD FOLLICLE STIMULATING HORMONE DECREASED
  17. NEBIDO [Concomitant]
     Indication: HYPOGONADISM MALE

REACTIONS (1)
  - Intestinal haemorrhage [Unknown]
